FAERS Safety Report 9438990 (Version 1)
Quarter: 2013Q3

REPORT INFORMATION
  Report Type: Report from Study
  Country: US (occurrence: US)
  Receive Date: 20130802
  Receipt Date: 20130802
  Transmission Date: 20140515
  Serious: Yes (Life-Threatening, Other)
  Sender: FDA-Public Use
  Company Number: PHEH2013US016150

PATIENT
  Sex: Female

DRUGS (1)
  1. CLOZAPINE [Suspect]

REACTIONS (3)
  - Apparent death [Unknown]
  - Pancreatitis [Unknown]
  - Haemoglobin decreased [Unknown]
